FAERS Safety Report 7523474-6 (Version None)
Quarter: 2011Q2

REPORT INFORMATION
  Report Type: 
  Country: None (occurrence: None)
  Receive Date: 20110601
  Receipt Date: 20110601
  Transmission Date: 20111010
  Serious: Yes (Hospitalization)
  Sender: FDA-Public Use
  Company Number: None

PATIENT
  Sex: Female
  Weight: 55.8 kg

DRUGS (3)
  1. CISPLATIN [Suspect]
     Dosage: 40 MG
     Dates: end: 20110517
  2. TAXOL [Suspect]
     Dosage: 80 MG
     Dates: end: 20110517
  3. LEXAPRO [Concomitant]

REACTIONS (6)
  - PAIN [None]
  - NAUSEA [None]
  - RADIATION INJURY [None]
  - BACK PAIN [None]
  - CHEST PAIN [None]
  - RETCHING [None]
